FAERS Safety Report 16307370 (Version 3)
Quarter: 2019Q2

REPORT INFORMATION
  Report Type: Spontaneous
  Country: US (occurrence: US)
  Receive Date: 20190514
  Receipt Date: 20190621
  Transmission Date: 20190711
  Serious: Yes (Hospitalization)
  Sender: FDA-Public Use
  Company Number: US-BIOGEN-2019BI00736526

PATIENT
  Age: 38 Year
  Sex: Female

DRUGS (8)
  1. PLEGRIDY [Suspect]
     Active Substance: PEGINTERFERON BETA-1A
     Indication: MULTIPLE SCLEROSIS
     Route: 058
  2. PREDNISONE. [Suspect]
     Active Substance: PREDNISONE
     Indication: MULTIPLE SCLEROSIS RELAPSE
     Dosage: 50MG FOR 5 DAYS. 40MG, 30MG, AND 20MG FOR 1 DAY EACH, AND THE PATIENT IS CURRENTLY TAKING THE 10MG
     Route: 065
     Dates: start: 20190428
  3. SOLU-MEDROL [Suspect]
     Active Substance: METHYLPREDNISOLONE SODIUM SUCCINATE
     Indication: MULTIPLE SCLEROSIS RELAPSE
     Route: 042
     Dates: start: 20190424, end: 20190427
  4. PLEGRIDY [Suspect]
     Active Substance: PEGINTERFERON BETA-1A
     Route: 065
     Dates: start: 20160621
  5. PREDNISONE. [Suspect]
     Active Substance: PREDNISONE
     Dosage: 50MG FOR 5 DAYS. 40MG, 30MG, AND 20MG FOR 1 DAY EACH, AND THE PATIENT IS CURRENTLY TAKING THE 10MG
     Route: 065
  6. PREDNISONE. [Suspect]
     Active Substance: PREDNISONE
     Dosage: 50MG FOR 5 DAYS. 40MG, 30MG, AND 20MG FOR 1 DAY EACH, AND THE PATIENT IS CURRENTLY TAKING THE 10MG
     Route: 065
  7. PREDNISONE. [Suspect]
     Active Substance: PREDNISONE
     Dosage: 50MG FOR 5 DAYS. 40MG, 30MG, AND 20MG FOR 1 DAY EACH, AND THE PATIENT IS CURRENTLY TAKING THE 10MG
     Route: 065
  8. PREDNISONE. [Suspect]
     Active Substance: PREDNISONE
     Dosage: 50MG FOR 5 DAYS. 40MG, 30MG, AND 20MG FOR 1 DAY EACH, AND THE PATIENT IS CURRENTLY TAKING THE 10MG
     Route: 065

REACTIONS (3)
  - Nausea [Not Recovered/Not Resolved]
  - Multiple sclerosis relapse [Not Recovered/Not Resolved]
  - Stress [Not Recovered/Not Resolved]

NARRATIVE: CASE EVENT DATE: 20190301
